FAERS Safety Report 6423511-6 (Version None)
Quarter: 2009Q4

REPORT INFORMATION
  Report Type: 
  Country: None (occurrence: None)
  Receive Date: 20091102
  Receipt Date: 20091022
  Transmission Date: 20100525
  Serious: Yes (Other)
  Sender: FDA-Public Use
  Company Number: US-JNJFOC-20090907899

PATIENT
  Sex: Female
  Weight: 55.79 kg

DRUGS (3)
  1. REMICADE [Suspect]
     Indication: RHEUMATOID ARTHRITIS
     Route: 042
  2. SIMVASTATIN [Concomitant]
  3. FOLIC ACID [Concomitant]

REACTIONS (8)
  - ANGIOPLASTY [None]
  - CARDIAC ABLATION [None]
  - CARDIAC PACEMAKER INSERTION [None]
  - COLITIS [None]
  - CORONARY ARTERIAL STENT INSERTION [None]
  - IRRITABLE BOWEL SYNDROME [None]
  - PSORIASIS [None]
  - RAYNAUD'S PHENOMENON [None]
